FAERS Safety Report 25975397 (Version 1)
Quarter: 2025Q4

REPORT INFORMATION
  Report Type: Spontaneous
  Country: EU (occurrence: EU)
  Receive Date: 20251029
  Receipt Date: 20251029
  Transmission Date: 20260117
  Serious: Yes (Life-Threatening, Hospitalization, Other)
  Sender: MERCK SHARP & DOHME LLC
  Company Number: None

PATIENT
  Age: 65 Year
  Sex: Female
  Weight: 70 kg

DRUGS (12)
  1. KEYTRUDA [Suspect]
     Active Substance: PEMBROLIZUMAB
     Indication: Cervix carcinoma
     Dosage: 11 CYCLES IN TOTAL
     Route: 042
     Dates: start: 20240605, end: 20250813
  2. Kalnormin 1g [Concomitant]
     Dosage: 1-0-0
  3. IPRATROPIUM BROMIDE [Concomitant]
     Active Substance: IPRATROPIUM BROMIDE
     Dosage: 2-3 BREATHS MAXIMUM 12 BREATHS/DAY
  4. Cosyrel 5/5mg [Concomitant]
     Dosage: 1-0-0
  5. Letrox 100mcg [Concomitant]
     Dosage: 1-0-0
  6. OMEPRAZOLE [Concomitant]
     Active Substance: OMEPRAZOLE
     Dosage: 1-0-0
  7. PREDNISONE [Concomitant]
     Active Substance: PREDNISONE
     Dosage: 2-0-0
  8. Codeine 30mg [Concomitant]
     Indication: Cough
     Dosage: 0-0-1
  9. Alvesco spray [Concomitant]
  10. LENVATINIB [Concomitant]
     Active Substance: LENVATINIB
     Indication: Cervix carcinoma
     Dates: end: 202502
  11. FENOTEROL HYDROBROMIDE\IPRATROPIUM BROMIDE [Concomitant]
     Active Substance: FENOTEROL HYDROBROMIDE\IPRATROPIUM BROMIDE
  12. ELIQUIS [Concomitant]
     Active Substance: APIXABAN
     Dosage: 1-0-1

REACTIONS (2)
  - Immune-mediated hepatitis [Recovered/Resolved]
  - Immune-mediated enterocolitis [Recovering/Resolving]

NARRATIVE: CASE EVENT DATE: 20250401
